FAERS Safety Report 15167376 (Version 1)
Quarter: 2018Q3

REPORT INFORMATION
  Report Type: Spontaneous
  Country: US (occurrence: US)
  Receive Date: 20180719
  Receipt Date: 20180719
  Transmission Date: 20181010
  Serious: No
  Sender: FDA-Public Use
  Company Number: US-CHIESI USA INC.-US-2017CHI000240

PATIENT

DRUGS (2)
  1. ZYFLO CR [Suspect]
     Active Substance: ZILEUTON
     Dosage: 1 DF, BID
     Route: 048
     Dates: start: 2017
  2. ZYFLO CR [Suspect]
     Active Substance: ZILEUTON
     Indication: ASTHMA
     Dosage: 2 DF, BID
     Route: 048
     Dates: start: 2017, end: 2017

REACTIONS (2)
  - Abdominal pain upper [Recovering/Resolving]
  - Nausea [Recovering/Resolving]

NARRATIVE: CASE EVENT DATE: 2017
